FAERS Safety Report 4695445-9 (Version None)
Quarter: 2005Q2

REPORT INFORMATION
  Report Type: 
  Country: None (occurrence: None)
  Receive Date: 20050608
  Receipt Date: 20040811
  Transmission Date: 20051028
  Serious: Yes (Other)
  Sender: FDA-Public Use
  Company Number: 377564

PATIENT

DRUGS (4)
  1. ACCUTANE [Suspect]
     Indication: ACNE
     Dates: start: 20030601, end: 20030915
  2. ISOTRETINOIN [Suspect]
     Indication: ACNE
     Dates: start: 20031015, end: 20031123
  3. BIRTH CONTROL PILLS (ORAL CONTRACEPTIVE NOS) [Concomitant]
  4. NUVARING (ETHINYL ESTRADIOL/ETONOGESTREL) [Concomitant]

REACTIONS (2)
  - NO ADVERSE EFFECT [None]
  - PREGNANCY [None]
